FAERS Safety Report 18632142 (Version 1)
Quarter: 2020Q4

REPORT INFORMATION
  Report Type: Spontaneous
  Country: FR (occurrence: FR)
  Receive Date: 20201218
  Receipt Date: 20201218
  Transmission Date: 20210114
  Serious: Yes (Hospitalization)
  Sender: FDA-Public Use
  Company Number: FR-ACCORD-211132

PATIENT
  Age: 71 Year
  Sex: Male
  Weight: 82 kg

DRUGS (15)
  1. CARBOPLATIN. [Suspect]
     Active Substance: CARBOPLATIN
     Indication: LUNG CARCINOMA CELL TYPE UNSPECIFIED STAGE 0
     Route: 042
     Dates: start: 20200428
  2. ETOPOSIDE. [Suspect]
     Active Substance: ETOPOSIDE
     Indication: LUNG CARCINOMA CELL TYPE UNSPECIFIED STAGE 0
     Route: 042
     Dates: start: 20200428
  3. CALCIUM PHOSPHATE DIBASIC/MAGNESIUM GLYCEROPHOSPHATE/PHOSPHORIC ACID/SODIUM PHOSPHATE DIBASIC [Concomitant]
     Active Substance: CALCIUM PHOSPHATE, DIBASIC, ANHYDROUS\MAGNESIUM GLYCEROPHOSPHATE\PHOSPHORIC ACID\SODIUM PHOSPHATE, DIBASIC
     Route: 048
  4. IMOVANE [Concomitant]
     Active Substance: ZOPICLONE
     Dosage: STRENGTH:3.75 MG
     Route: 048
  5. BACLOFEN. [Concomitant]
     Active Substance: BACLOFEN
     Route: 048
  6. ELIQUIS [Concomitant]
     Active Substance: APIXABAN
     Dosage: STRENGTH:5 MG
     Route: 048
  7. RAMIPRIL. [Concomitant]
     Active Substance: RAMIPRIL
     Route: 048
  8. DIFFU K [Concomitant]
     Active Substance: POTASSIUM CHLORIDE
     Route: 048
  9. PREGABALIN. [Concomitant]
     Active Substance: PREGABALIN
     Route: 048
  10. LANSOPRAZOLE. [Concomitant]
     Active Substance: LANSOPRAZOLE
     Route: 048
  11. TECENTRIQ [Suspect]
     Active Substance: ATEZOLIZUMAB
     Indication: LUNG CARCINOMA CELL TYPE UNSPECIFIED STAGE 0
     Route: 042
     Dates: start: 20200428
  12. SIMVASTATIN. [Concomitant]
     Active Substance: SIMVASTATIN
     Route: 048
  13. SOLUPRED [Concomitant]
     Dosage: STRENGHT:20 MG
     Route: 048
  14. DULOXETINE. [Concomitant]
     Active Substance: DULOXETINE
     Route: 048
  15. BISOCE [Concomitant]
     Active Substance: BISOPROLOL
     Dosage: STRENGTH:2.5 MG
     Route: 048

REACTIONS (2)
  - Febrile bone marrow aplasia [Recovered/Resolved]
  - Septic shock [Recovered/Resolved]

NARRATIVE: CASE EVENT DATE: 20200618
